FAERS Safety Report 18257358 (Version 1)
Quarter: 2020Q3

REPORT INFORMATION
  Report Type: Spontaneous
  Country: US (occurrence: US)
  Receive Date: 20200911
  Receipt Date: 20200911
  Transmission Date: 20201103
  Serious: Yes (Other)
  Sender: FDA-Public Use
  Company Number: NVSC2020US239309

PATIENT
  Age: 63 Year
  Sex: Female
  Weight: 88.45 kg

DRUGS (1)
  1. XIIDRA [Suspect]
     Active Substance: LIFITEGRAST
     Indication: DRY EYE
     Dosage: 1 G, BID
     Route: 047
     Dates: start: 20200501, end: 20200820

REACTIONS (2)
  - Eye discharge [Recovering/Resolving]
  - Noninfective conjunctivitis [Unknown]

NARRATIVE: CASE EVENT DATE: 20200501
